FAERS Safety Report 7585483-0 (Version None)
Quarter: 2011Q2

REPORT INFORMATION
  Report Type: 
  Country: None (occurrence: None)
  Receive Date: 20110628
  Receipt Date: 20110628
  Transmission Date: 20111010
  Serious: No
  Sender: FDA-Public Use
  Company Number: None

PATIENT
  Age: 50 Year
  Sex: Male

DRUGS (1)
  1. ZOLPIDEM [Suspect]
     Dosage: T Q HS

REACTIONS (3)
  - PRODUCT SUBSTITUTION ISSUE [None]
  - NIGHTMARE [None]
  - AGITATION [None]
